FAERS Safety Report 19657453 (Version 2)
Quarter: 2021Q3

REPORT INFORMATION
  Report Type: Spontaneous
  Country: US (occurrence: US)
  Receive Date: 20210804
  Receipt Date: 20210930
  Transmission Date: 20211014
  Serious: No
  Sender: FDA-Public Use
  Company Number: US-JNJFOC-20210752904

PATIENT
  Age: 68 Year
  Sex: Female

DRUGS (4)
  1. LISINOPRIL HCTZ [Concomitant]
     Active Substance: HYDROCHLOROTHIAZIDE\LISINOPRIL
     Indication: SINUS DISORDER
     Dosage: 20?25 PER DAY
     Route: 065
  2. ZYRTEC [Suspect]
     Active Substance: CETIRIZINE HYDROCHLORIDE
     Indication: HYPERSENSITIVITY
     Dosage: 1 TABLET IN THE FIRST DAY AND HALF ON THE 2ND AND 3RD DAY
     Route: 065
     Dates: start: 20210720, end: 20210722
  3. ZYRTEC [Suspect]
     Active Substance: CETIRIZINE HYDROCHLORIDE
     Indication: NASAL CONGESTION
  4. ASPRIN [Concomitant]
     Active Substance: ASPIRIN
     Indication: SINUS DISORDER
     Dosage: 1.84ML PER DAY
     Route: 065

REACTIONS (8)
  - Muscle spasms [Recovered/Resolved]
  - Wrong technique in product usage process [Unknown]
  - Somnolence [Recovered/Resolved]
  - Constipation [Unknown]
  - Feeling abnormal [Recovered/Resolved]
  - Nervousness [Recovered/Resolved]
  - Product use in unapproved indication [Unknown]
  - Lethargy [Unknown]

NARRATIVE: CASE EVENT DATE: 202107
